FAERS Safety Report 23944529 (Version 1)
Quarter: 2024Q2

REPORT INFORMATION
  Report Type: Spontaneous
  Country: US (occurrence: US)
  Receive Date: 20240606
  Receipt Date: 20240606
  Transmission Date: 20240716
  Serious: Yes (Hospitalization, Other)
  Sender: FDA-Public Use
  Company Number: US-MLMSERVICE-20240515-PI063453-00202-1

PATIENT
  Age: 78 Year
  Sex: Female

DRUGS (1)
  1. LINEZOLID [Suspect]
     Active Substance: LINEZOLID
     Indication: Enterococcal infection
     Dosage: 600 MILLIGRAM, Q12H
     Route: 065

REACTIONS (2)
  - Metabolic acidosis [Recovered/Resolved]
  - Mitochondrial cytopathy [Unknown]
